FAERS Safety Report 6935329-6 (Version None)
Quarter: 2010Q3

REPORT INFORMATION
  Report Type: 
  Country: None (occurrence: None)
  Receive Date: 20100823
  Receipt Date: 20100406
  Transmission Date: 20110219
  Serious: No
  Sender: FDA-Public Use
  Company Number: US-BAYER-201018827NA

PATIENT
  Age: 25 Year
  Sex: Female

DRUGS (1)
  1. MIRENA [Suspect]
     Indication: CONTRACEPTION
     Dosage: FREQUECY CONTINUOUS
     Route: 015
     Dates: start: 20080120

REACTIONS (6)
  - BREAST ENLARGEMENT [None]
  - HYPOMENORRHOEA [None]
  - MENSTRUATION DELAYED [None]
  - MUSCLE SPASMS [None]
  - PREGNANCY [None]
  - VAGINAL HAEMORRHAGE [None]
